FAERS Safety Report 5338577-4 (Version None)
Quarter: 2007Q2

REPORT INFORMATION
  Report Type: 
  Country: None (occurrence: None)
  Receive Date: 20070530
  Receipt Date: 20070524
  Transmission Date: 20071010
  Serious: Yes (Death, Hospitalization)
  Sender: FDA-Public Use
  Company Number: AU-GENENTECH-239746

PATIENT
  Sex: Male

DRUGS (6)
  1. RITUXIMAB [Suspect]
     Indication: WEGENER'S GRANULOMATOSIS
     Dosage: 375 MG/M2, X4
     Route: 042
     Dates: start: 20061127
  2. CYCLOPHOSPHAMIDE [Concomitant]
     Indication: WEGENER'S GRANULOMATOSIS
     Dates: start: 20061127
  3. PREDNISOLONE [Concomitant]
     Indication: WEGENER'S GRANULOMATOSIS
     Dates: start: 20061127
  4. DILTIAZEM [Concomitant]
     Indication: DRUG USE FOR UNKNOWN INDICATION
  5. ISOSORBIDE MONONITRATE [Concomitant]
     Indication: DRUG USE FOR UNKNOWN INDICATION
  6. PERINDOPRIL ERBUMINE [Concomitant]
     Indication: DRUG USE FOR UNKNOWN INDICATION

REACTIONS (3)
  - CARDIAC FAILURE CONGESTIVE [None]
  - CORONARY ARTERY DISEASE [None]
  - PNEUMONIA CYTOMEGALOVIRAL [None]
